FAERS Safety Report 14179382 (Version 5)
Quarter: 2018Q1

REPORT INFORMATION
  Report Type: Spontaneous
  Country: FR (occurrence: FR)
  Receive Date: 20171110
  Receipt Date: 20180326
  Transmission Date: 20180508
  Serious: Yes (Life-Threatening, Hospitalization, Other)
  Sender: FDA-Public Use
  Company Number: FR-PFIZER INC-2017478656

PATIENT
  Age: 54 Year
  Sex: Male

DRUGS (16)
  1. LEXOMIL [Suspect]
     Active Substance: BROMAZEPAM
     Indication: ANXIETY
     Dosage: 6 MG, DAILY
     Route: 048
     Dates: start: 20170918, end: 20170918
  2. LIORESAL [Suspect]
     Active Substance: BACLOFEN
     Dosage: 80 MG, DAILY
     Dates: start: 20170918, end: 20170918
  3. ZOLOFT [Suspect]
     Active Substance: SERTRALINE HYDROCHLORIDE
     Dosage: 14 CAPSULES (700 MG, SINGLE)
     Route: 048
     Dates: start: 20170918, end: 20170918
  4. VALIUM [Suspect]
     Active Substance: DIAZEPAM
     Dosage: 140 MG, SINGLE
     Route: 048
     Dates: start: 20170918, end: 20170918
  5. LIORESAL [Suspect]
     Active Substance: BACLOFEN
     Dosage: 100 MG, SINGLE
     Route: 048
     Dates: start: 20170918, end: 20170918
  6. NICOPATCH [Concomitant]
     Active Substance: NICOTINE
     Dosage: 21 MG, DAILY
  7. LEXOMIL [Suspect]
     Active Substance: BROMAZEPAM
     Dosage: 126 MG, SINGLE
     Route: 048
     Dates: start: 20170918, end: 20170918
  8. ZOLOFT [Suspect]
     Active Substance: SERTRALINE HYDROCHLORIDE
     Dosage: 0.5 MG, DAILY
  9. VALIUM [Suspect]
     Active Substance: DIAZEPAM
     Dosage: 10 MG, DAILY
     Route: 048
  10. XEROQUEL LP [Suspect]
     Active Substance: QUETIAPINE FUMARATE
     Dosage: 10 TABLETS (4000 MG, SINGLE)
     Route: 048
     Dates: start: 20170918, end: 20170918
  11. ZOLOFT [Suspect]
     Active Substance: SERTRALINE HYDROCHLORIDE
     Dosage: 50 MG, THREE TIMES DAILY
     Route: 048
  12. VALIUM [Suspect]
     Active Substance: DIAZEPAM
     Dosage: 100 MG, DAILY
  13. SELINCRO [Concomitant]
     Active Substance: NALMEFENE HYDROCHLORIDE DIHYDRATE
     Dosage: 18 MG, ONCE A DAY
  14. XEROQUEL LP [Suspect]
     Active Substance: QUETIAPINE FUMARATE
     Dosage: 400 MG, ONCE A DAY
     Dates: start: 20170918, end: 20170918
  15. IMOVANE [Suspect]
     Active Substance: ZOPICLONE
     Dosage: 3.75 MG, DAILY
  16. IMOVANE [Suspect]
     Active Substance: ZOPICLONE
     Dosage: 105 MG, SINGLE
     Route: 048
     Dates: start: 20170918, end: 20170918

REACTIONS (7)
  - Delirium tremens [Unknown]
  - Respiratory distress [Unknown]
  - Suicide attempt [Unknown]
  - Coma [Recovered/Resolved]
  - Pneumonia aspiration [Recovered/Resolved]
  - Poisoning deliberate [Recovered/Resolved with Sequelae]
  - Hypotension [Recovered/Resolved]

NARRATIVE: CASE EVENT DATE: 2017
